FAERS Safety Report 13170294 (Version 1)
Quarter: 2017Q1

REPORT INFORMATION
  Report Type: Spontaneous
  Country: DE (occurrence: DE)
  Receive Date: 20170131
  Receipt Date: 20170131
  Transmission Date: 20170428
  Serious: Yes (Other)
  Sender: FDA-Public Use
  Company Number: ALCN2017DE000821

PATIENT
  Sex: Female

DRUGS (2)
  1. SIMBRINZA [Suspect]
     Active Substance: BRIMONIDINE TARTRATE\BRINZOLAMIDE
     Indication: GLAUCOMA
     Dosage: 1 GTT, BID
     Route: 047
     Dates: start: 20161010
  2. TORASEMID [Concomitant]
     Active Substance: TORSEMIDE
     Indication: BLOOD PRESSURE ABNORMAL
     Dosage: UNK
     Route: 065

REACTIONS (11)
  - Impaired quality of life [Unknown]
  - Condition aggravated [Unknown]
  - Blood pressure decreased [Unknown]
  - Mental impairment [Unknown]
  - Dry mouth [Unknown]
  - Dysgeusia [Unknown]
  - Eye pain [Unknown]
  - Blood pressure fluctuation [Unknown]
  - Cardiac discomfort [Unknown]
  - Somnolence [Unknown]
  - Fall [Unknown]
